FAERS Safety Report 26132098 (Version 1)
Quarter: 2025Q4

REPORT INFORMATION
  Report Type: Spontaneous
  Country: EU (occurrence: EU)
  Receive Date: 20251208
  Receipt Date: 20251208
  Transmission Date: 20260118
  Serious: Yes (Life-Threatening, Other)
  Sender: MYLAN
  Company Number: None

PATIENT
  Age: 79 Year
  Sex: Female

DRUGS (28)
  1. AMLODIPINE\VALSARTAN [Suspect]
     Active Substance: AMLODIPINE\VALSARTAN
     Indication: Hypertension
     Dosage: 5 MILLIGRAM, QD (1/160 MILLIGRAM PER DAY)
     Dates: start: 20251022, end: 20251031
  2. AMLODIPINE\VALSARTAN [Suspect]
     Active Substance: AMLODIPINE\VALSARTAN
     Dosage: 5 MILLIGRAM, QD (1/160 MILLIGRAM PER DAY)
     Route: 048
     Dates: start: 20251022, end: 20251031
  3. AMLODIPINE\VALSARTAN [Suspect]
     Active Substance: AMLODIPINE\VALSARTAN
     Dosage: 5 MILLIGRAM, QD (1/160 MILLIGRAM PER DAY)
     Route: 048
     Dates: start: 20251022, end: 20251031
  4. AMLODIPINE\VALSARTAN [Suspect]
     Active Substance: AMLODIPINE\VALSARTAN
     Dosage: 5 MILLIGRAM, QD (1/160 MILLIGRAM PER DAY)
     Dates: start: 20251022, end: 20251031
  5. CLOPIDOGREL [Suspect]
     Active Substance: CLOPIDOGREL BISULFATE
     Indication: Prophylaxis
     Dosage: 75 MILLIGRAM, QD (75 MILLIGRAM DAILY)
     Dates: start: 20251022, end: 20251031
  6. CLOPIDOGREL [Suspect]
     Active Substance: CLOPIDOGREL BISULFATE
     Dosage: 75 MILLIGRAM, QD (75 MILLIGRAM DAILY)
     Route: 048
     Dates: start: 20251022, end: 20251031
  7. CLOPIDOGREL [Suspect]
     Active Substance: CLOPIDOGREL BISULFATE
     Dosage: 75 MILLIGRAM, QD (75 MILLIGRAM DAILY)
     Route: 048
     Dates: start: 20251022, end: 20251031
  8. CLOPIDOGREL [Suspect]
     Active Substance: CLOPIDOGREL BISULFATE
     Dosage: 75 MILLIGRAM, QD (75 MILLIGRAM DAILY)
     Dates: start: 20251022, end: 20251031
  9. BISOPROLOL FUMARATE [Suspect]
     Active Substance: BISOPROLOL FUMARATE
     Indication: Tachycardia
     Dosage: 5 MILLIGRAM, QD (5 MILLIGRAM PER DAY)
     Dates: start: 20251022, end: 20251031
  10. BISOPROLOL FUMARATE [Suspect]
     Active Substance: BISOPROLOL FUMARATE
     Dosage: 5 MILLIGRAM, QD (5 MILLIGRAM PER DAY)
     Route: 048
     Dates: start: 20251022, end: 20251031
  11. BISOPROLOL FUMARATE [Suspect]
     Active Substance: BISOPROLOL FUMARATE
     Dosage: 5 MILLIGRAM, QD (5 MILLIGRAM PER DAY)
     Route: 048
     Dates: start: 20251022, end: 20251031
  12. BISOPROLOL FUMARATE [Suspect]
     Active Substance: BISOPROLOL FUMARATE
     Dosage: 5 MILLIGRAM, QD (5 MILLIGRAM PER DAY)
     Dates: start: 20251022, end: 20251031
  13. LATANOPROST [Suspect]
     Active Substance: LATANOPROST
     Indication: Glaucoma
     Dosage: 50 MICROGRAM PER 100 GRAM
     Dates: start: 20251022, end: 20251031
  14. LATANOPROST [Suspect]
     Active Substance: LATANOPROST
     Dosage: 50 MICROGRAM PER 100 GRAM
     Route: 065
     Dates: start: 20251022, end: 20251031
  15. LATANOPROST [Suspect]
     Active Substance: LATANOPROST
     Dosage: 50 MICROGRAM PER 100 GRAM
     Route: 065
     Dates: start: 20251022, end: 20251031
  16. LATANOPROST [Suspect]
     Active Substance: LATANOPROST
     Dosage: 50 MICROGRAM PER 100 GRAM
     Dates: start: 20251022, end: 20251031
  17. COSOPT [Suspect]
     Active Substance: DORZOLAMIDE HYDROCHLORIDE\TIMOLOL MALEATE
     Indication: Glaucoma
     Dosage: 1 MILLILITER, BID (1-2 DROPS IN EYES TWICE DAILY, 2%-0.5% OPHTHALMIC SOLUTION)
     Dates: start: 20251022, end: 20251031
  18. COSOPT [Suspect]
     Active Substance: DORZOLAMIDE HYDROCHLORIDE\TIMOLOL MALEATE
     Dosage: 1 MILLILITER, BID (1-2 DROPS IN EYES TWICE DAILY, 2%-0.5% OPHTHALMIC SOLUTION)
     Route: 047
     Dates: start: 20251022, end: 20251031
  19. COSOPT [Suspect]
     Active Substance: DORZOLAMIDE HYDROCHLORIDE\TIMOLOL MALEATE
     Dosage: 1 MILLILITER, BID (1-2 DROPS IN EYES TWICE DAILY, 2%-0.5% OPHTHALMIC SOLUTION)
     Route: 047
     Dates: start: 20251022, end: 20251031
  20. COSOPT [Suspect]
     Active Substance: DORZOLAMIDE HYDROCHLORIDE\TIMOLOL MALEATE
     Dosage: 1 MILLILITER, BID (1-2 DROPS IN EYES TWICE DAILY, 2%-0.5% OPHTHALMIC SOLUTION)
     Dates: start: 20251022, end: 20251031
  21. PANTOPRAZOLE SODIUM [Suspect]
     Active Substance: PANTOPRAZOLE SODIUM
     Indication: Dyspepsia
     Dosage: 40 MILLIGRAM, QD (40 MILLIGRAM DAILY)
     Dates: start: 20251022, end: 20251031
  22. PANTOPRAZOLE SODIUM [Suspect]
     Active Substance: PANTOPRAZOLE SODIUM
     Dosage: 40 MILLIGRAM, QD (40 MILLIGRAM DAILY)
     Route: 048
     Dates: start: 20251022, end: 20251031
  23. PANTOPRAZOLE SODIUM [Suspect]
     Active Substance: PANTOPRAZOLE SODIUM
     Dosage: 40 MILLIGRAM, QD (40 MILLIGRAM DAILY)
     Route: 048
     Dates: start: 20251022, end: 20251031
  24. PANTOPRAZOLE SODIUM [Suspect]
     Active Substance: PANTOPRAZOLE SODIUM
     Dosage: 40 MILLIGRAM, QD (40 MILLIGRAM DAILY)
     Dates: start: 20251022, end: 20251031
  25. ROSUVASTATIN CALCIUM [Suspect]
     Active Substance: ROSUVASTATIN CALCIUM
     Indication: Arteriosclerosis
     Dosage: 10 MILLIGRAM, QD (10 MILLIGRAM PER DAY)
     Dates: start: 20251022, end: 20251031
  26. ROSUVASTATIN CALCIUM [Suspect]
     Active Substance: ROSUVASTATIN CALCIUM
     Dosage: 10 MILLIGRAM, QD (10 MILLIGRAM PER DAY)
     Route: 048
     Dates: start: 20251022, end: 20251031
  27. ROSUVASTATIN CALCIUM [Suspect]
     Active Substance: ROSUVASTATIN CALCIUM
     Dosage: 10 MILLIGRAM, QD (10 MILLIGRAM PER DAY)
     Route: 048
     Dates: start: 20251022, end: 20251031
  28. ROSUVASTATIN CALCIUM [Suspect]
     Active Substance: ROSUVASTATIN CALCIUM
     Dosage: 10 MILLIGRAM, QD (10 MILLIGRAM PER DAY)
     Dates: start: 20251022, end: 20251031

REACTIONS (1)
  - Skin cancer [Not Recovered/Not Resolved]

NARRATIVE: CASE EVENT DATE: 20251022
